FAERS Safety Report 6302793-5 (Version None)
Quarter: 2009Q3

REPORT INFORMATION
  Report Type: 
  Country: None (occurrence: None)
  Receive Date: 20090810
  Receipt Date: 20090421
  Transmission Date: 20100115
  Serious: No
  Sender: FDA-Public Use
  Company Number: A0779948A

PATIENT
  Age: 29 Year
  Sex: Female

DRUGS (3)
  1. ALTABAX [Suspect]
     Indication: IMPETIGO
     Route: 061
  2. BACTROBAN [Suspect]
     Indication: IMPETIGO
     Dosage: 1APP TWICE PER DAY
     Route: 061
     Dates: start: 20090301, end: 20090401
  3. VITAMIN TAB [Concomitant]

REACTIONS (2)
  - DRUG EXPOSURE VIA BREAST MILK [None]
  - DRUG INEFFECTIVE [None]
